FAERS Safety Report 25229921 (Version 2)
Quarter: 2025Q2

REPORT INFORMATION
  Report Type: Spontaneous
  Country: JP (occurrence: JP)
  Receive Date: 20250423
  Receipt Date: 20250620
  Transmission Date: 20250716
  Serious: Yes (Other)
  Sender: MYLAN
  Company Number: JP-VIATRISJAPAN-2025M1033532AA

PATIENT
  Age: 4 Decade
  Sex: Female

DRUGS (8)
  1. SERTRALINE [Suspect]
     Active Substance: SERTRALINE HYDROCHLORIDE
     Indication: Product used for unknown indication
  2. SERTRALINE [Suspect]
     Active Substance: SERTRALINE HYDROCHLORIDE
     Route: 048
  3. SERTRALINE [Suspect]
     Active Substance: SERTRALINE HYDROCHLORIDE
     Route: 048
  4. SERTRALINE [Suspect]
     Active Substance: SERTRALINE HYDROCHLORIDE
  5. PITAVASTATIN [Concomitant]
     Active Substance: PITAVASTATIN
     Indication: Product used for unknown indication
  6. PITAVASTATIN [Concomitant]
     Active Substance: PITAVASTATIN
     Route: 048
  7. PITAVASTATIN [Concomitant]
     Active Substance: PITAVASTATIN
     Route: 048
  8. PITAVASTATIN [Concomitant]
     Active Substance: PITAVASTATIN

REACTIONS (2)
  - Rhabdomyolysis [Unknown]
  - Myositis [Unknown]
